FAERS Safety Report 9193133 (Version 3)
Quarter: 2013Q4

REPORT INFORMATION
  Report Type: Spontaneous
  Country: US (occurrence: None)
  Receive Date: 20120703
  Receipt Date: 20131226
  Transmission Date: 20140711
  Serious: Yes (Other)
  Sender: FDA-Public Use
  Company Number: PHEH2012US006131

PATIENT
  Age: 34 Year
  Sex: Female
  Weight: 59 kg

DRUGS (3)
  1. GILENYA [Suspect]
     Indication: MULTIPLE SCLEROSIS
     Route: 048
     Dates: start: 201203
  2. TRAMADOL HYDROCHLORIDE (TRAMADOL HYDROCHLORIDE) TABLET [Concomitant]
  3. STEROIDS NOS (NO INGREDIENTS/SUBSTANCES) [Concomitant]

REACTIONS (7)
  - Pruritus [None]
  - Somnolence [None]
  - Headache [None]
  - Multiple sclerosis relapse [None]
  - Drug ineffective [None]
  - Central nervous system lesion [None]
  - Hypoaesthesia [None]
